FAERS Safety Report 20834066 (Version 1)
Quarter: 2022Q2

REPORT INFORMATION
  Report Type: 
  Country: None (occurrence: None)
  Receive Date: 20220516
  Receipt Date: 20220516
  Transmission Date: 20220720
  Serious: No
  Sender: FDA-Public Use
  Company Number: US-ROCHE-3093661

PATIENT
  Weight: 80.3 kg

DRUGS (2)
  1. TOCILIZUMAB [Suspect]
     Active Substance: TOCILIZUMAB
     Dosage: 4 MG/KG
     Dates: start: 20220318
  2. DEXAMETHASONE [Concomitant]
     Active Substance: DEXAMETHASONE
     Dates: start: 20220402

REACTIONS (2)
  - Partial seizures [None]
  - Craniotomy [None]

NARRATIVE: CASE EVENT DATE: 20220408
